FAERS Safety Report 9999383 (Version 3)
Quarter: 2014Q2

REPORT INFORMATION
  Report Type: Spontaneous
  Country: US (occurrence: US)
  Receive Date: 20140312
  Receipt Date: 20140402
  Transmission Date: 20141212
  Serious: Yes (Hospitalization, Other)
  Sender: FDA-Public Use
  Company Number: US-BAXTER-2014BAX011234

PATIENT
  Sex: Female

DRUGS (1)
  1. DIANEAL LOW CALCIUM [Suspect]
     Indication: PERITONEAL DIALYSIS
     Route: 033

REACTIONS (4)
  - Post procedural haemorrhage [Recovered/Resolved]
  - Feeding tube complication [Recovered/Resolved]
  - Feeding disorder of infancy or early childhood [Not Recovered/Not Resolved]
  - Fungal peritonitis [Recovering/Resolving]
